FAERS Safety Report 4732683-0 (Version None)
Quarter: 2005Q3

REPORT INFORMATION
  Report Type: 
  Country: None (occurrence: None)
  Receive Date: 20050801
  Receipt Date: 20050720
  Transmission Date: 20060218
  Serious: Yes (Hospitalization)
  Sender: FDA-Public Use
  Company Number: 175464

PATIENT
  Age: 38 Year
  Sex: Female

DRUGS (1)
  1. AVONEX [Suspect]
     Indication: MULTIPLE SCLEROSIS
     Dosage: 30  UG;QW; IM
     Route: 030
     Dates: start: 20020110

REACTIONS (2)
  - CAROTID ARTERY OCCLUSION [None]
  - INTRACRANIAL ANEURYSM [None]
